FAERS Safety Report 5597487-8 (Version None)
Quarter: 2008Q1

REPORT INFORMATION
  Report Type: 
  Country: None (occurrence: None)
  Receive Date: 20080121
  Receipt Date: 20080114
  Transmission Date: 20080703
  Serious: Yes (Other)
  Sender: FDA-Public Use
  Company Number: PHBS2007BR21643

PATIENT
  Age: 40 Year
  Sex: Female
  Weight: 65 kg

DRUGS (4)
  1. SLOW-K [Suspect]
     Dosage: 24 G, ONCE/SINGLE
     Route: 048
     Dates: start: 20071228
  2. METFORMIN [Concomitant]
     Indication: DIABETES MELLITUS
     Dosage: 1 G/DAY
     Route: 048
     Dates: start: 20061201
  3. CAPTOPRIL [Concomitant]
     Indication: HYPERTENSION
     Dosage: 25 MG/DAY
     Route: 048
     Dates: start: 20061201
  4. CLONAZEPAM [Concomitant]
     Indication: DEPRESSION
     Dosage: 1 TAB/DAY
     Route: 048
     Dates: start: 20061201

REACTIONS (2)
  - DYSPNOEA [None]
  - INCORRECT DOSE ADMINISTERED [None]
